FAERS Safety Report 6917175-2 (Version None)
Quarter: 2010Q3

REPORT INFORMATION
  Report Type: 
  Country: None (occurrence: None)
  Receive Date: 20100804
  Receipt Date: 20100722
  Transmission Date: 20110219
  Serious: Yes (Hospitalization)
  Sender: FDA-Public Use
  Company Number: 016394

PATIENT
  Sex: Female
  Weight: 62 kg

DRUGS (3)
  1. KEPPRA [Suspect]
     Indication: STATUS EPILEPTICUS
     Dosage: (1000 MG INTRAVENOUS (NOT OTHERWISE SPECIFIED)), (2000 MG INTRAVENOUS (NOT OTHERWISE SPECIFIED)
     Route: 042
     Dates: start: 20080602, end: 20080603
  2. KEPPRA [Suspect]
     Indication: STATUS EPILEPTICUS
     Dosage: (1000 MG INTRAVENOUS (NOT OTHERWISE SPECIFIED)), (2000 MG INTRAVENOUS (NOT OTHERWISE SPECIFIED)
     Route: 042
     Dates: start: 20080601
  3. KEPPRA [Suspect]
     Indication: STATUS EPILEPTICUS
     Dosage: (1000 MG INTRAVENOUS (NOT OTHERWISE SPECIFIED)), (2000 MG INTRAVENOUS (NOT OTHERWISE SPECIFIED)
     Route: 042
     Dates: start: 20080604

REACTIONS (2)
  - DRUG INEFFECTIVE [None]
  - STATUS EPILEPTICUS [None]
